FAERS Safety Report 12551608 (Version 2)
Quarter: 2016Q3

REPORT INFORMATION
  Report Type: Report from Study
  Country: US (occurrence: US)
  Receive Date: 20160713
  Receipt Date: 20160728
  Transmission Date: 20161109
  Serious: Yes (Hospitalization)
  Sender: FDA-Public Use
  Company Number: US-ABBVIE-16K-163-1670715-00

PATIENT
  Sex: Female
  Weight: 52.21 kg

DRUGS (3)
  1. HUMIRA [Suspect]
     Active Substance: ADALIMUMAB
     Indication: CROHN^S DISEASE
     Route: 058
     Dates: start: 201410
  2. ARMOUR THYROID [Concomitant]
     Active Substance: THYROID, PORCINE
     Indication: PRODUCT USED FOR UNKNOWN INDICATION
  3. LASIX [Concomitant]
     Active Substance: FUROSEMIDE
     Indication: PRODUCT USED FOR UNKNOWN INDICATION

REACTIONS (4)
  - Joint range of motion decreased [Unknown]
  - Arthralgia [Recovering/Resolving]
  - Abasia [Unknown]
  - Inflammation [Recovering/Resolving]
